FAERS Safety Report 6493509-0 (Version None)
Quarter: 2009Q4

REPORT INFORMATION
  Report Type: 
  Country: None (occurrence: None)
  Receive Date: 20091209
  Receipt Date: 20091123
  Transmission Date: 20100525
  Serious: Yes (Disabling)
  Sender: FDA-Public Use
  Company Number: TPG2009A01049

PATIENT
  Age: 60 Year
  Sex: Male
  Weight: 103 kg

DRUGS (2)
  1. ACTOS [Suspect]
     Indication: DIABETES MELLITUS
     Dosage: 30 MG (30 MG, 0-0-1) PER ORAL
     Route: 048
  2. NOVOLOG [Concomitant]

REACTIONS (8)
  - BLISTER [None]
  - DIZZINESS [None]
  - FATIGUE [None]
  - HYPOAESTHESIA [None]
  - OEDEMA [None]
  - PRURITUS GENERALISED [None]
  - VISUAL IMPAIRMENT [None]
  - WEIGHT INCREASED [None]
